FAERS Safety Report 12666506 (Version 1)
Quarter: 2016Q3

REPORT INFORMATION
  Report Type: Spontaneous
  Country: US (occurrence: US)
  Receive Date: 20160819
  Receipt Date: 20160819
  Transmission Date: 20161109
  Serious: No
  Sender: FDA-Public Use
  Company Number: US-009507513-1608USA003896

PATIENT

DRUGS (2)
  1. EMEND [Suspect]
     Active Substance: APREPITANT
     Indication: NAUSEA
     Route: 048
  2. EMEND [Suspect]
     Active Substance: APREPITANT
     Indication: VOMITING

REACTIONS (2)
  - No adverse event [Unknown]
  - Product use issue [Unknown]
